FAERS Safety Report 7241723-9 (Version None)
Quarter: 2011Q1

REPORT INFORMATION
  Report Type: 
  Country: None (occurrence: None)
  Receive Date: 20110124
  Receipt Date: 20110120
  Transmission Date: 20110831
  Serious: Yes (Death)
  Sender: FDA-Public Use
  Company Number: PHHY2010MY79921

PATIENT
  Age: 70 Year
  Sex: Male

DRUGS (1)
  1. GLEEVEC [Suspect]
     Indication: GASTROINTESTINAL STROMAL TUMOUR
     Dosage: UNK
     Route: 048

REACTIONS (2)
  - GASTROINTESTINAL STROMAL TUMOUR [None]
  - NEOPLASM MALIGNANT [None]
